FAERS Safety Report 13032457 (Version 1)
Quarter: 2016Q4

REPORT INFORMATION
  Report Type: Spontaneous
  Country: US (occurrence: US)
  Receive Date: 20161215
  Receipt Date: 20161215
  Transmission Date: 20170207
  Serious: No
  Sender: FDA-Public Use
  Company Number: US-ALLERGAN-1669847US

PATIENT
  Age: 78 Year
  Sex: Male
  Weight: 85.71 kg

DRUGS (2)
  1. VIBERZI [Suspect]
     Active Substance: ELUXADOLINE
     Indication: DIARRHOEA
     Dosage: 75 MG, BID
     Route: 048
  2. VIBERZI [Suspect]
     Active Substance: ELUXADOLINE
     Indication: COLITIS MICROSCOPIC

REACTIONS (3)
  - Off label use [Unknown]
  - Drug dose omission [Unknown]
  - Constipation [Not Recovered/Not Resolved]
